FAERS Safety Report 10243628 (Version 1)
Quarter: 2014Q1

REPORT INFORMATION
  Report Type: Spontaneous
  Country: US (occurrence: None)
  Receive Date: 20140306
  Receipt Date: 20140306
  Transmission Date: 20141002
  Serious: Yes (Hospitalization)
  Sender: FDA-Public Use
  Company Number: 163-21880-13114132

PATIENT
  Age: 85 Year
  Sex: Female

DRUGS (8)
  1. REVLIMID(LENALIDOMIE)(5 MILLIGRAM, CAPSULES) [Suspect]
     Indication: MYELODYSPLASTIC SYNDROME
     Dosage: 5 MG, 1 IN 2 D, PO
     Route: 048
     Dates: start: 20130926, end: 2013
  2. LOVENOX(HEPARIN-FRACTION, SODIUM SALT)(UKNOWN) [Suspect]
     Indication: DEEP VEIN THROMBOSIS
     Dates: start: 20131104, end: 20131113
  3. LOVENOX(HEPARIN-FRACTION, SODIUM SALT)(UKNOWN) [Suspect]
     Indication: PULMONARY EMBOLISM
     Dates: start: 20131104, end: 20131113
  4. PROCRIT (ERYTHROPOIETIN) [Concomitant]
  5. AMLODIPINE(AMLODIPINE) [Concomitant]
  6. DYAZIDE(DYAZIDE) [Concomitant]
  7. DEXILANT(DEXLANSOPRAZOLE) [Concomitant]
  8. PEPCIDE(FAMOTIDINE) [Concomitant]

REACTIONS (3)
  - Deep vein thrombosis [None]
  - Pulmonary embolism [None]
  - Creatinine renal clearance decreased [None]
